FAERS Safety Report 9794726 (Version 2)
Quarter: 2014Q1

REPORT INFORMATION
  Report Type: Spontaneous
  Country: US (occurrence: US)
  Receive Date: 20140102
  Receipt Date: 20140113
  Transmission Date: 20141002
  Serious: No
  Sender: FDA-Public Use
  Company Number: US-PFIZER INC-2013374574

PATIENT
  Sex: Male

DRUGS (2)
  1. VIAGRA [Suspect]
     Dosage: 50 MG, UNK
  2. VIAGRA [Suspect]
     Dosage: 100 MG, UNK

REACTIONS (3)
  - Drug ineffective [Recovered/Resolved]
  - Nasopharyngitis [Unknown]
  - Malaise [Unknown]
